FAERS Safety Report 5620905-3 (Version None)
Quarter: 2008Q1

REPORT INFORMATION
  Report Type: 
  Country: None (occurrence: None)
  Receive Date: 20080208
  Receipt Date: 20080128
  Transmission Date: 20080703
  Serious: Yes (Disabling)
  Sender: FDA-Public Use
  Company Number: ES-PFIZER INC-2008008134

PATIENT
  Sex: Male

DRUGS (5)
  1. VORICONAZOLE [Suspect]
     Indication: EVIDENCE BASED TREATMENT
     Dates: start: 20080111, end: 20080122
  2. VANCOMYCIN [Concomitant]
  3. MEROPENEM [Concomitant]
  4. AMBISOME [Concomitant]
  5. DRUG, UNSPECIFIED [Concomitant]

REACTIONS (1)
  - HAEMORRHAGE INTRACRANIAL [None]
